FAERS Safety Report 17717071 (Version 1)
Quarter: 2020Q2

REPORT INFORMATION
  Report Type: Spontaneous
  Country: US (occurrence: US)
  Receive Date: 20200428
  Receipt Date: 20200428
  Transmission Date: 20200714
  Serious: No
  Sender: FDA-Public Use
  Company Number: US-PFIZER INC-2020165641

PATIENT
  Sex: Female

DRUGS (1)
  1. SERTRALINE HCL [Suspect]
     Active Substance: SERTRALINE HYDROCHLORIDE
     Dosage: 100 MG, 1X/DAY (SERTRALINE 100 MG QTY 30 DAY SUPPLY 30)

REACTIONS (5)
  - Irritability [Unknown]
  - Hyperacusis [Unknown]
  - Parosmia [Unknown]
  - Drug ineffective [Unknown]
  - Taste disorder [Unknown]
